FAERS Safety Report 15597784 (Version 1)
Quarter: 2018Q4

REPORT INFORMATION
  Report Type: Spontaneous
  Country: US (occurrence: US)
  Receive Date: 20181108
  Receipt Date: 20181108
  Transmission Date: 20190205
  Serious: No
  Sender: FDA-Public Use
  Company Number: US-REGULIS-2058583

PATIENT
  Age: 63 Year
  Sex: Female

DRUGS (7)
  1. NOREPINEPHRINE. [Concomitant]
     Active Substance: NOREPINEPHRINE
  2. PROPOFOL. [Concomitant]
     Active Substance: PROPOFOL
  3. CISATRACURIUM. [Concomitant]
     Active Substance: CISATRACURIUM
  4. FENTANYL. [Concomitant]
     Active Substance: FENTANYL
  5. VASOPRESSIN. [Concomitant]
     Active Substance: VASOPRESSIN
  6. METHYLENE BLUE. [Suspect]
     Active Substance: METHYLENE BLUE
     Indication: HYPOTENSION
     Route: 042
  7. ISOFLURANE. [Concomitant]
     Active Substance: ISOFLURANE

REACTIONS (2)
  - Laboratory test interference [Unknown]
  - Off label use [Unknown]
